FAERS Safety Report 4585786-8 (Version None)
Quarter: 2005Q1

REPORT INFORMATION
  Report Type: 
  Country: None (occurrence: None)
  Receive Date: 20050209
  Receipt Date: 20050127
  Transmission Date: 20050727
  Serious: Yes (Other)
  Sender: FDA-Public Use
  Company Number: 200510006BCA

PATIENT
  Age: 35 Year
  Sex: Male

DRUGS (19)
  1. GAMUNEX [Suspect]
     Indication: HYPOGAMMAGLOBULINAEMIA
     Dosage: SEE IMAGE
     Route: 042
  2. GAMUNEX [Suspect]
     Indication: PURPURA
     Dosage: SEE IMAGE
     Route: 042
  3. GAMUNEX [Suspect]
     Indication: THROMBOSIS
     Dosage: SEE IMAGE
     Route: 042
  4. GAMUNEX [Suspect]
  5. GAMUNEX [Suspect]
  6. GAMUNEX [Suspect]
  7. GAMUNEX [Suspect]
  8. GAMUNEX [Suspect]
  9. GAMUNEX [Suspect]
  10. GAMUNEX [Suspect]
  11. GAMUNEX [Suspect]
  12. GAMUNEX [Suspect]
  13. GAMUNEX [Suspect]
  14. ZINC [Concomitant]
  15. PREDNISONE [Concomitant]
  16. BIAXIN [Concomitant]
  17. LASIX [Concomitant]
  18. SPIROLACTONE [Concomitant]
  19. IRON [Concomitant]

REACTIONS (2)
  - HEPATITIS C ANTIBODY POSITIVE [None]
  - LABORATORY TEST ABNORMAL [None]
